FAERS Safety Report 10392800 (Version 1)
Quarter: 2014Q3

REPORT INFORMATION
  Report Type: Spontaneous
  Country: ES (occurrence: ES)
  Receive Date: 20140819
  Receipt Date: 20140819
  Transmission Date: 20150326
  Serious: Yes (Hospitalization)
  Sender: FDA-Public Use
  Company Number: ES-JNJFOC-20140814162

PATIENT
  Age: 81 Year
  Sex: Female

DRUGS (1)
  1. ZALDIAR [Suspect]
     Active Substance: ACETAMINOPHEN\TRAMADOL HYDROCHLORIDE
     Indication: ARTHRALGIA
     Route: 049
     Dates: start: 2014

REACTIONS (1)
  - Iron deficiency anaemia [Recovering/Resolving]

NARRATIVE: CASE EVENT DATE: 2014
